FAERS Safety Report 16014380 (Version 1)
Quarter: 2019Q1

REPORT INFORMATION
  Report Type: Spontaneous
  Country: US (occurrence: US)
  Receive Date: 20190227
  Receipt Date: 20190227
  Transmission Date: 20190418
  Serious: No
  Sender: FDA-Public Use
  Company Number: US-009507513-1902USA007898

PATIENT
  Sex: Male

DRUGS (9)
  1. TELMISARTAN. [Concomitant]
     Active Substance: TELMISARTAN
  2. SYNTHROID [Concomitant]
     Active Substance: LEVOTHYROXINE SODIUM
  3. ALBUTEROL. [Concomitant]
     Active Substance: ALBUTEROL
  4. DULERA [Suspect]
     Active Substance: FORMOTEROL FUMARATE DIHYDRATE\MOMETASONE FUROATE
     Indication: ASTHMA
     Dosage: 2 PUFFS 2X DAILY
     Route: 055
     Dates: start: 2014
  5. CLARITIN [Concomitant]
     Active Substance: LORATADINE
  6. PROTONIX [Concomitant]
     Active Substance: PANTOPRAZOLE SODIUM
  7. NORVASC [Concomitant]
     Active Substance: AMLODIPINE BESYLATE
  8. SINGULAIR [Concomitant]
     Active Substance: MONTELUKAST SODIUM
  9. PLAVIX [Concomitant]
     Active Substance: CLOPIDOGREL BISULFATE

REACTIONS (1)
  - Dysphonia [Not Recovered/Not Resolved]

NARRATIVE: CASE EVENT DATE: 2014
